FAERS Safety Report 5905919-8 (Version None)
Quarter: 2008Q4

REPORT INFORMATION
  Report Type: 
  Country: None (occurrence: None)
  Receive Date: 20081002
  Receipt Date: 20080922
  Transmission Date: 20090506
  Serious: Yes (Other)
  Sender: FDA-Public Use
  Company Number: FR-WATSON-2008-05652

PATIENT
  Sex: Female

DRUGS (3)
  1. TRELSTAR DEPOT MIXJECT (WATSON LABORATORIES) [Suspect]
     Indication: IN VITRO FERTILISATION
     Dosage: 0.1 MG, DAILY
     Route: 058
     Dates: start: 20080326, end: 20080419
  2. OVITRELLE [Suspect]
     Indication: IN VITRO FERTILISATION
     Dosage: 1 MG, DAILY
     Route: 058
     Dates: start: 20080420
  3. GONAL-F [Suspect]
     Indication: IN VITRO FERTILISATION
     Dosage: 150 IU, DAILY
     Route: 058
     Dates: start: 20080409, end: 20080419

REACTIONS (4)
  - ERYTHEMA [None]
  - EYELID OEDEMA [None]
  - FACE OEDEMA [None]
  - PRURITUS [None]
